APPROVED DRUG PRODUCT: METHYLPREDNISOLONE SODIUM SUCCINATE
Active Ingredient: METHYLPREDNISOLONE SODIUM SUCCINATE
Strength: EQ 500MG BASE/VIAL
Dosage Form/Route: INJECTABLE;INJECTION
Application: A040641 | Product #003
Applicant: BEDFORD LABORATORIES
Approved: Feb 21, 2007 | RLD: No | RS: No | Type: DISCN